FAERS Safety Report 9656756 (Version 1)
Quarter: 2013Q4

REPORT INFORMATION
  Report Type: Spontaneous
  Country: US (occurrence: US)
  Receive Date: 20131030
  Receipt Date: 20131030
  Transmission Date: 20140711
  Serious: No
  Sender: FDA-Public Use
  Company Number: US-TEVA-441561USA

PATIENT
  Age: 26 Year
  Sex: Female
  Weight: 70.37 kg

DRUGS (5)
  1. PLAN B ONE-STEP [Suspect]
     Indication: POST COITAL CONTRACEPTION
     Dosage: 1.5 MILLIGRAM DAILY;
     Route: 048
     Dates: start: 201310, end: 201310
  2. ABILIFY [Concomitant]
     Indication: DEPRESSION
  3. VALTREX [Concomitant]
     Indication: SEXUALLY TRANSMITTED DISEASE
  4. MONONESSA [Concomitant]
     Indication: CONTRACEPTION
  5. MONONESSA [Concomitant]
     Indication: SKIN DISORDER

REACTIONS (1)
  - Menstruation irregular [Not Recovered/Not Resolved]
